FAERS Safety Report 18938203 (Version 1)
Quarter: 2021Q1

REPORT INFORMATION
  Report Type: Spontaneous
  Country: US (occurrence: US)
  Receive Date: 20210224
  Receipt Date: 20210224
  Transmission Date: 20210420
  Serious: No
  Sender: FDA-Public Use
  Company Number: None

PATIENT
  Age: 67 Year
  Sex: Female
  Weight: 109 kg

DRUGS (1)
  1. BAMLANIVIMAB. [Suspect]
     Active Substance: BAMLANIVIMAB
     Indication: COVID-19
     Dosage: ?          OTHER FREQUENCY:ONCE;?
     Route: 042
     Dates: start: 20210206, end: 20210206

REACTIONS (7)
  - Pneumothorax [None]
  - Ischaemic hepatitis [None]
  - Dyspnoea [None]
  - Hypoxia [None]
  - Acute kidney injury [None]
  - Cardio-respiratory arrest [None]
  - Septic shock [None]

NARRATIVE: CASE EVENT DATE: 20210211
